FAERS Safety Report 5794266-3 (Version None)
Quarter: 2008Q2

REPORT INFORMATION
  Report Type: 
  Country: None (occurrence: None)
  Receive Date: 20080627
  Receipt Date: 20080618
  Transmission Date: 20081010
  Serious: Yes (Hospitalization)
  Sender: FDA-Public Use
  Company Number: CL-ABBOTT-08P-034-0458241-00

PATIENT
  Sex: Female
  Weight: 60 kg

DRUGS (3)
  1. KALETRA [Suspect]
     Indication: HIV INFECTION
     Dosage: 800/200 MG, DAILY
     Route: 048
     Dates: start: 20070504
  2. KALETRA [Suspect]
     Indication: HIV INFECTION
     Dates: end: 20071201
  3. SAQUINAVIR [Concomitant]
     Indication: HIV INFECTION
     Dosage: DAILY
     Route: 048
     Dates: start: 20070504

REACTIONS (6)
  - DIARRHOEA [None]
  - DRY SKIN [None]
  - MUCOSAL DRYNESS [None]
  - ORAL CANDIDIASIS [None]
  - VOMITING [None]
  - WEIGHT DECREASED [None]
